FAERS Safety Report 20577019 (Version 14)
Quarter: 2022Q2

REPORT INFORMATION
  Report Type: Report from Study
  Country: CN (occurrence: None)
  Receive Date: 20220310
  Receipt Date: 20220624
  Transmission Date: 20220721
  Serious: Yes (Hospitalization)
  Sender: FDA-Public Use
  Company Number: CN-Eisai Medical Research-EC-2022-108812

PATIENT
  Age: 67 Year
  Sex: Female
  Weight: 59.5 kg

DRUGS (12)
  1. LENVATINIB [Suspect]
     Active Substance: LENVATINIB
     Indication: Endometrial cancer
     Route: 048
     Dates: start: 20211216, end: 20220221
  2. PEMBROLIZUMAB [Suspect]
     Active Substance: PEMBROLIZUMAB
     Indication: Endometrial cancer
     Route: 041
     Dates: start: 20211216, end: 20211216
  3. PEMBROLIZUMAB [Suspect]
     Active Substance: PEMBROLIZUMAB
     Route: 041
     Dates: start: 20220106, end: 20220106
  4. PEMBROLIZUMAB [Suspect]
     Active Substance: PEMBROLIZUMAB
     Route: 041
     Dates: start: 20220228, end: 20220228
  5. PEMBROLIZUMAB [Suspect]
     Active Substance: PEMBROLIZUMAB
     Route: 041
     Dates: start: 20220325
  6. FU FANG DAN SHEN [Concomitant]
     Dates: start: 20150101, end: 20220223
  7. POTASSIUM CHLORIDE [Concomitant]
     Active Substance: POTASSIUM CHLORIDE
     Dates: start: 20211213
  8. AMERICAN COCKROACH [Concomitant]
     Active Substance: PERIPLANETA AMERICANA
     Route: 061
     Dates: start: 20220101, end: 20220124
  9. LEUCOGEN [Concomitant]
     Active Substance: LEUCOGEN
     Dates: start: 20220101, end: 20220119
  10. AMLODIPINE BESYLATE [Concomitant]
     Active Substance: AMLODIPINE BESYLATE
     Dates: start: 20220106, end: 20220115
  11. INDAPAMIDE [Concomitant]
     Active Substance: INDAPAMIDE
     Dates: start: 20220116, end: 20220117
  12. HERBALS [Concomitant]
     Active Substance: HERBALS
     Dates: start: 20220118, end: 20220123

REACTIONS (3)
  - Ketoacidosis [Recovered/Resolved]
  - Diabetes mellitus [Not Recovered/Not Resolved]
  - Pancreatitis [Recovered/Resolved]

NARRATIVE: CASE EVENT DATE: 20220120
